FAERS Safety Report 5082962-5 (Version None)
Quarter: 2006Q3

REPORT INFORMATION
  Report Type: 
  Country: None (occurrence: None)
  Receive Date: 20060814
  Receipt Date: 20060728
  Transmission Date: 20061208
  Serious: Yes (Hospitalization, Other)
  Sender: FDA-Public Use
  Company Number: 228040

PATIENT
  Age: 75 Year
  Sex: Female
  Weight: 40.5 kg

DRUGS (6)
  1. AVASTIN [Suspect]
     Indication: COLON CANCER
     Dosage: 5 MG/KG, INTRAVENOUS
     Route: 042
     Dates: start: 20060704, end: 20060704
  2. ELOXATIN [Suspect]
     Indication: COLON CANCER
     Dates: start: 20060620
  3. ALDACTONE [Concomitant]
  4. TENORETIC (ATENOLOL, CHLORTHALIDONE) [Concomitant]
  5. KARDEGIC (ASPIRIN DL-LYSINE) [Concomitant]
  6. ISKEDYL (ERGOLOID MESYLATES, RAUBASINE) [Concomitant]

REACTIONS (1)
  - ANAPHYLACTIC SHOCK [None]
